FAERS Safety Report 7217868-6 (Version None)
Quarter: 2011Q1

REPORT INFORMATION
  Report Type: 
  Country: None (occurrence: None)
  Receive Date: 20110110
  Receipt Date: 20101231
  Transmission Date: 20110831
  Serious: Yes (Hospitalization)
  Sender: FDA-Public Use
  Company Number: ES-ABBOTT-11P-144-0694841-01

PATIENT
  Age: 31 Year
  Sex: Female
  Weight: 47 kg

DRUGS (3)
  1. AZATIOPRINA [Concomitant]
     Indication: CROHN'S DISEASE
     Dates: start: 20090225
  2. HUMIRA [Suspect]
     Indication: CROHN'S DISEASE
     Route: 058
     Dates: end: 20101216
  3. HUMIRA [Concomitant]
     Indication: CROHN'S DISEASE
     Route: 058
     Dates: start: 20080530, end: 20080928

REACTIONS (1)
  - INTESTINAL RESECTION [None]
